FAERS Safety Report 7492241-4 (Version None)
Quarter: 2011Q2

REPORT INFORMATION
  Report Type: 
  Country: None (occurrence: None)
  Receive Date: 20110519
  Receipt Date: 20110106
  Transmission Date: 20111010
  Serious: No
  Sender: FDA-Public Use
  Company Number: US-NOVEN-11US001553

PATIENT
  Sex: Male
  Weight: 18.141 kg

DRUGS (3)
  1. CLONIDINE [Concomitant]
     Indication: PSYCHOMOTOR HYPERACTIVITY
     Dosage: .05 MG, MORNING
     Route: 048
  2. DAYTRANA [Suspect]
     Indication: ABNORMAL BEHAVIOUR
     Dosage: 10 MG, MORNING
     Route: 062
     Dates: start: 20100101
  3. CLONIDINE [Concomitant]
     Dosage: 0.3 MG, EVENING
     Route: 048

REACTIONS (3)
  - PRODUCT QUALITY ISSUE [None]
  - OFF LABEL USE [None]
  - DRUG INEFFECTIVE [None]
